FAERS Safety Report 25489512 (Version 4)
Quarter: 2025Q4

REPORT INFORMATION
  Report Type: Report from Study
  Country: JP (occurrence: JP)
  Receive Date: 20250627
  Receipt Date: 20251219
  Transmission Date: 20260117
  Serious: Yes (Other)
  Sender: SHIONOGI
  Company Number: JP-shionogi-202500006510

PATIENT
  Age: 36 Year
  Sex: Male
  Weight: 58.2 kg

DRUGS (16)
  1. CEFIDEROCOL [Suspect]
     Active Substance: CEFIDEROCOL
     Indication: Abdominal abscess
     Dosage: 2 DOSES STARTING IN THE AFTERNOON
     Route: 041
     Dates: start: 20241108, end: 20241108
  2. CEFIDEROCOL [Suspect]
     Active Substance: CEFIDEROCOL
     Route: 041
     Dates: start: 20241109, end: 20241118
  3. Medicon (internal medicine representative) [Concomitant]
     Indication: Product used for unknown indication
     Route: 048
     Dates: start: 20241101, end: 20241128
  4. AMPICILLIN SODIUM\SULBACTAM SODIUM [Concomitant]
     Active Substance: AMPICILLIN SODIUM\SULBACTAM SODIUM
     Indication: Abdominal abscess
     Route: 065
     Dates: start: 20241030, end: 20241101
  5. AMPICILLIN SODIUM\SULBACTAM SODIUM [Concomitant]
     Active Substance: AMPICILLIN SODIUM\SULBACTAM SODIUM
     Route: 065
     Dates: start: 20241108, end: 20241118
  6. FOSFOMYCIN SODIUM [Concomitant]
     Active Substance: FOSFOMYCIN SODIUM
     Indication: Abdominal abscess
     Route: 065
     Dates: start: 20241102, end: 20241105
  7. GENTAMICIN SULFATE [Concomitant]
     Active Substance: GENTAMICIN SULFATE
     Indication: Abdominal abscess
     Route: 065
     Dates: start: 20241106, end: 20241107
  8. FESIN [Concomitant]
     Indication: Product used for unknown indication
     Route: 065
     Dates: start: 20241104, end: 20241128
  9. ACETAMINOPHEN [Concomitant]
     Active Substance: ACETAMINOPHEN
     Indication: Product used for unknown indication
     Route: 065
     Dates: start: 20241029, end: 20241118
  10. URSODIOL [Concomitant]
     Active Substance: URSODIOL
     Indication: Prophylaxis
     Route: 048
     Dates: start: 20241101, end: 20250215
  11. DAYVIGO [Concomitant]
     Active Substance: LEMBOREXANT
     Indication: Product used for unknown indication
     Route: 048
     Dates: start: 20241101, end: 20241226
  12. CARBOCYSTEINE [Concomitant]
     Active Substance: CARBOCYSTEINE
     Indication: Product used for unknown indication
     Route: 048
     Dates: start: 20241108, end: 20241121
  13. AMBROXOL HYDROCHLORIDE [Concomitant]
     Active Substance: AMBROXOL HYDROCHLORIDE
     Indication: Product used for unknown indication
     Route: 048
     Dates: start: 20241108, end: 20241121
  14. LOXOPROFEN [Concomitant]
     Active Substance: LOXOPROFEN
     Indication: Product used for unknown indication
     Route: 048
     Dates: start: 20241101, end: 20241114
  15. FAMOTIDINE [Concomitant]
     Active Substance: FAMOTIDINE
     Indication: Prophylaxis
     Route: 048
     Dates: start: 20241029, end: 20241226
  16. CELECOXIB [Concomitant]
     Active Substance: CELECOXIB
     Indication: Product used for unknown indication
     Route: 048
     Dates: start: 20241029, end: 20241104

REACTIONS (2)
  - Pathogen resistance [Unknown]
  - Drug resistance [Unknown]

NARRATIVE: CASE EVENT DATE: 20241114
